FAERS Safety Report 7118823-7 (Version None)
Quarter: 2010Q4

REPORT INFORMATION
  Report Type: 
  Country: None (occurrence: None)
  Receive Date: 20101027
  Receipt Date: 20100125
  Transmission Date: 20110411
  Serious: Yes (Other)
  Sender: FDA-Public Use
  Company Number: US-WYE-H13138010

PATIENT
  Age: 60 Year
  Sex: Female

DRUGS (5)
  1. PREMARIN [Suspect]
     Indication: VULVOVAGINAL DRYNESS
     Dosage: 0.625 MG 1X PER 1 WK, VAGINAL
     Route: 067
     Dates: start: 20080701
  2. CARDIZEM [Concomitant]
  3. DIOVAN [Concomitant]
  4. PLAVIX [Concomitant]
  5. ZOCOR [Concomitant]

REACTIONS (7)
  - DYSPNOEA [None]
  - HYPERSENSITIVITY [None]
  - PRURITUS [None]
  - SWELLING [None]
  - SWOLLEN TONGUE [None]
  - THROAT TIGHTNESS [None]
  - VULVOVAGINAL PRURITUS [None]
